FAERS Safety Report 21729003 (Version 1)
Quarter: 2022Q4

REPORT INFORMATION
  Report Type: Spontaneous
  Country: CO (occurrence: None)
  Receive Date: 20221214
  Receipt Date: 20221214
  Transmission Date: 20230112
  Serious: Yes (Hospitalization)
  Sender: FDA-Public Use
  Company Number: 2022A401297

PATIENT
  Sex: Male

DRUGS (1)
  1. DAPAGLIFLOZIN [Suspect]
     Active Substance: DAPAGLIFLOZIN
     Indication: Cardiac failure
     Route: 048
     Dates: start: 20220101

REACTIONS (1)
  - Ischaemia [Recovered/Resolved]

NARRATIVE: CASE EVENT DATE: 20221120
